FAERS Safety Report 4417776-X (Version None)
Quarter: 2004Q3

REPORT INFORMATION
  Report Type: 
  Country: None (occurrence: None)
  Receive Date: 20040803
  Receipt Date: 20040719
  Transmission Date: 20050211
  Serious: Yes (Hospitalization)
  Sender: FDA-Public Use
  Company Number: NSADSS2002016208

PATIENT
  Age: 57 Year
  Sex: Male
  Weight: 89 kg

DRUGS (6)
  1. REMICADE [Suspect]
     Indication: RHEUMATOID ARTHRITIS
     Dosage: 300 MG, 1 IN 1 AS NECESSARY, INTRAVENOUS DRIP
     Route: 042
     Dates: start: 20010927, end: 20010927
  2. REMICADE [Suspect]
     Indication: RHEUMATOID ARTHRITIS
     Dosage: 300 MG, 1 IN 1 AS NECESSARY, INTRAVENOUS DRIP
     Route: 042
     Dates: start: 20020228, end: 20020228
  3. HYDROXYCHLOROQUINE (HYDROXYCHLOROQUINE) TABLETS [Concomitant]
  4. NAPROXEN (NAPROXEN) TABLETS [Concomitant]
  5. METHOTREXATE [Concomitant]
  6. FOLIC ACID (FOLIC ACID) TABLETS [Concomitant]

REACTIONS (1)
  - ATRIAL FIBRILLATION [None]
